FAERS Safety Report 5420064-6 (Version None)
Quarter: 2007Q3

REPORT INFORMATION
  Report Type: 
  Country: None (occurrence: None)
  Receive Date: 20070820
  Receipt Date: 20070808
  Transmission Date: 20080115
  Serious: Yes (Other)
  Sender: FDA-Public Use
  Company Number: DE-PFIZER INC-2007066236

PATIENT
  Sex: Female

DRUGS (2)
  1. CLINDAMYCIN HCL [Suspect]
     Indication: DENTAL OPERATION
     Route: 048
     Dates: start: 20070803, end: 20070808
  2. CHLORHEXIDINE GLUCONATE [Concomitant]

REACTIONS (2)
  - STOMATITIS [None]
  - SWOLLEN TONGUE [None]
